FAERS Safety Report 9129612 (Version 3)
Quarter: 2013Q4

REPORT INFORMATION
  Report Type: Spontaneous
  Country: US (occurrence: US)
  Receive Date: 20130228
  Receipt Date: 20131127
  Transmission Date: 20140711
  Serious: Yes (Hospitalization)
  Sender: FDA-Public Use
  Company Number: US-B.I. PHARMACEUTICALS,INC./RIDGEFIELD-2013-BI-05109BP

PATIENT
  Age: 58 Year
  Sex: Male
  Weight: 106.59 kg

DRUGS (14)
  1. PRADAXA [Suspect]
     Indication: ATRIAL FIBRILLATION
     Dosage: 300 MG
     Route: 048
     Dates: start: 20120425, end: 20120509
  2. QUINAPRIL [Concomitant]
     Dosage: 40 MG
     Route: 048
  3. QUINAPRIL [Concomitant]
     Dosage: 10 MG
     Route: 048
  4. METOPROLOL [Concomitant]
  5. AMLODIPINE [Concomitant]
     Dosage: 5 MG
     Route: 048
  6. METFORMIN [Concomitant]
     Dosage: 1000 MG
     Route: 048
  7. LEVOTHYROXINE [Concomitant]
     Dosage: 0.137 MG
     Route: 048
  8. CLONIDINE [Concomitant]
     Dosage: 0.3 MG
     Route: 048
  9. ASPIRIN [Concomitant]
     Indication: CORONARY ARTERY DISEASE
     Dosage: 81 MG
     Route: 048
  10. HYDROCHLOROTHIAZIDE-TRIAMTERENE [Concomitant]
     Route: 048
  11. FENOFIBRATE [Concomitant]
     Dosage: 145 MG
     Route: 048
  12. ATORVASTATIN [Concomitant]
     Dosage: 40 MG
     Route: 048
  13. DILTIAZEM [Concomitant]
     Dosage: 240 MG
     Route: 048
  14. DIGOXIN [Concomitant]
     Dosage: 125 MCG
     Route: 048

REACTIONS (1)
  - Upper gastrointestinal haemorrhage [Recovered/Resolved]
